FAERS Safety Report 8871786 (Version 1)
Quarter: 2012Q4

REPORT INFORMATION
  Report Type: 
  Country: US (occurrence: US)
  Receive Date: 20121026
  Receipt Date: 20121026
  Transmission Date: 20130627
  Serious: No
  Sender: FDA-Public Use
  Company Number: US-AMGEN-USASP2012043744

PATIENT
  Age: 70 Year
  Sex: Male
  Weight: 92.97 kg

DRUGS (6)
  1. ENBREL [Suspect]
     Indication: RHEUMATOID ARTHRITIS
     Dosage: 50 mg, qwk
     Dates: start: 20120503
  2. PREDNISONE [Concomitant]
     Dosage: 10 mg, UNK
  3. SYNTHROID [Concomitant]
     Dosage: 100 mug, UNK
  4. FOLIC ACID [Concomitant]
     Dosage: 1 mg, UNK
  5. LOVAZA [Concomitant]
     Dosage: 1 gm, UNK
  6. VITAMIN D3 [Concomitant]
     Dosage: 2000 unit, UNK

REACTIONS (1)
  - Drug ineffective [Not Recovered/Not Resolved]
